FAERS Safety Report 8431730-2 (Version None)
Quarter: 2012Q2

REPORT INFORMATION
  Report Type: 
  Country: None (occurrence: None)
  Receive Date: 20120613
  Receipt Date: 20120605
  Transmission Date: 20120825
  Serious: Yes (Hospitalization)
  Sender: FDA-Public Use
  Company Number: US-BAYER-2012-057495

PATIENT
  Age: 40 Year
  Sex: Female
  Weight: 65.306 kg

DRUGS (9)
  1. DROSPIRENONE AND ETHINYL ESTRADIOL [Suspect]
  2. YASMIN [Suspect]
     Indication: CONTRACEPTION
  3. NEXIUM [Concomitant]
  4. TRAMADOL HYDROCHLORIDE AND ACETAMINOPHEN [Concomitant]
     Dosage: 37.5-325 MG,1 EVERY 6 HOURS
     Route: 048
     Dates: start: 20100121
  5. SKELAXIN [Concomitant]
     Dosage: 800 MG, TID
     Route: 048
     Dates: start: 20100121
  6. ACETAMINOPHEN [Concomitant]
     Dosage: UNK
     Route: 048
     Dates: start: 20100123
  7. LIDODERM [Concomitant]
     Dosage: 700 MG, UNK
     Route: 061
     Dates: start: 20100121
  8. NEURONTIN [Concomitant]
  9. YAZ [Suspect]

REACTIONS (1)
  - TRANSVERSE SINUS THROMBOSIS [None]
